FAERS Safety Report 12975530 (Version 1)
Quarter: 2016Q4

REPORT INFORMATION
  Report Type: Report from Study
  Country: CA (occurrence: CA)
  Receive Date: 20161125
  Receipt Date: 20161125
  Transmission Date: 20170207
  Serious: Yes (Other)
  Sender: FDA-Public Use
  Company Number: CA-JNJFOC-20161120824

PATIENT
  Age: 41 Year
  Sex: Male
  Weight: 72.7 kg

DRUGS (2)
  1. SIMPONI [Suspect]
     Active Substance: GOLIMUMAB
     Indication: ANKYLOSING SPONDYLITIS
     Route: 042
     Dates: start: 20150223
  2. CELEBREX [Concomitant]
     Active Substance: CELECOXIB
     Dosage: 1/52 AGO
     Route: 065

REACTIONS (4)
  - Haematochezia [Unknown]
  - Off label use [Unknown]
  - Musculoskeletal pain [Unknown]
  - Product use issue [Unknown]

NARRATIVE: CASE EVENT DATE: 20150223
